FAERS Safety Report 5191961-4 (Version None)
Quarter: 2006Q4

REPORT INFORMATION
  Report Type: 
  Country: None (occurrence: None)
  Receive Date: 20061227
  Receipt Date: 20061220
  Transmission Date: 20070319
  Serious: Yes (Hospitalization)
  Sender: FDA-Public Use
  Company Number: FR-BAYER-200611216BFR

PATIENT
  Age: 72 Year
  Sex: Female

DRUGS (6)
  1. ACARBOSE [Suspect]
     Indication: DIABETES MELLITUS
     Dosage: TOTAL DAILY DOSE: 150 MG  UNIT DOSE: 50 MG
     Route: 048
  2. KAYEXALATE [Suspect]
     Indication: UNEVALUABLE EVENT
     Route: 048
  3. GLUCOPHAGE [Suspect]
     Indication: DIABETES MELLITUS
     Dosage: TOTAL DAILY DOSE: 3000 MG  UNIT DOSE: 1000 MG
     Route: 048
  4. OMEPRAZOLE [Suspect]
     Indication: DUODENITIS
     Dosage: TOTAL DAILY DOSE: 20 MG  UNIT DOSE: 20 MG
     Route: 048
  5. HEMIGOXINE NATIVELLE [Suspect]
     Indication: ATRIAL FIBRILLATION
     Dosage: TOTAL DAILY DOSE: 0.125 MG  UNIT DOSE: 0.125 MG
     Route: 048
  6. LASIX [Suspect]
     Indication: ESSENTIAL HYPERTENSION
     Dosage: TOTAL DAILY DOSE: 80 MG  UNIT DOSE: 40 MG
     Route: 048

REACTIONS (3)
  - HYPOGLYCAEMIA [None]
  - MALAISE [None]
  - RENAL FAILURE ACUTE [None]
